FAERS Safety Report 22916424 (Version 3)
Quarter: 2023Q4

REPORT INFORMATION
  Report Type: Spontaneous
  Country: FR (occurrence: FR)
  Receive Date: 20230907
  Receipt Date: 20231102
  Transmission Date: 20240110
  Serious: Yes (Death, Hospitalization)
  Sender: FDA-Public Use
  Company Number: FR-ROCHE-3411741

PATIENT
  Age: 70 Year
  Sex: Male

DRUGS (6)
  1. BEVACIZUMAB [Suspect]
     Active Substance: BEVACIZUMAB
     Indication: Non-small cell lung cancer
     Dosage: 15 MG/KG, EVERY 3 WEEKS (DATE OF LAST ADMINISTRATION OF STUDY TREATMENT 02AUG2023)
     Route: 042
     Dates: start: 20230802
  2. PACLITAXEL [Suspect]
     Active Substance: PACLITAXEL
     Indication: Non-small cell lung cancer
     Dosage: 200 MG/M2, EVERY 3 WEEKS (DATE OF LAST ADMINISTRATION OF STUDY TREATMENT 02AUG2023)
     Route: 042
     Dates: start: 20230802
  3. MORPHINE [Suspect]
     Active Substance: MORPHINE
     Dosage: PER HOUR
     Route: 065
     Dates: start: 20230824
  4. ATEZOLIZUMAB [Suspect]
     Active Substance: ATEZOLIZUMAB
     Indication: Non-small cell lung cancer
     Dosage: 1200 MG, EVERY 3 WEEKS (DATE OF LAST ADMINISTRATION OF STUDY TREATMENT 02AUG2023)
     Route: 042
     Dates: start: 20230802
  5. TRANXENE [Concomitant]
     Active Substance: CLORAZEPATE DIPOTASSIUM
     Dosage: 20 MG
     Dates: start: 20230824
  6. OXAZEPAM [Concomitant]
     Active Substance: OXAZEPAM
     Dosage: 10 MG
     Dates: start: 20230824

REACTIONS (2)
  - General physical health deterioration [Fatal]
  - Disease progression [Fatal]

NARRATIVE: CASE EVENT DATE: 20230824
